FAERS Safety Report 10580855 (Version 1)
Quarter: 2014Q4

REPORT INFORMATION
  Report Type: Spontaneous
  Country: IT (occurrence: None)
  Receive Date: 20141110
  Receipt Date: 20141110
  Transmission Date: 20150529
  Serious: Yes (Hospitalization)
  Sender: FDA-Public Use
  Company Number: 2615481

PATIENT
  Age: 18 Year
  Sex: Male

DRUGS (10)
  1. VINCRISTINE [Concomitant]
     Active Substance: VINCRISTINE
  2. CYCLOPHOSPHAMIDE. [Concomitant]
     Active Substance: CYCLOPHOSPHAMIDE
  3. CYTARABINE. [Concomitant]
     Active Substance: CYTARABINE
  4. L-ASPARAGINASE [Concomitant]
     Active Substance: ASPARAGINASE
  5. IFOSFAMIDE. [Concomitant]
     Active Substance: IFOSFAMIDE
  6. METHOTREXATE [Suspect]
     Active Substance: METHOTREXATE
     Indication: B PRECURSOR TYPE ACUTE LEUKAEMIA
     Dosage: 3 G/M^2
  7. VINDESINE [Concomitant]
     Active Substance: VINDESINE
  8. PREDNISONE. [Concomitant]
     Active Substance: PREDNISONE
  9. DAUNORUBICIN [Concomitant]
     Active Substance: DAUNORUBICIN
  10. 6-MERCAPTOPURINE MONOHYDRATE [Concomitant]
     Active Substance: MERCAPTOPURINE

REACTIONS (5)
  - Posterior reversible encephalopathy syndrome [None]
  - Blood pressure increased [None]
  - Loss of consciousness [None]
  - Malignant neoplasm progression [None]
  - B precursor type acute leukaemia [None]
